FAERS Safety Report 16944729 (Version 2)
Quarter: 2020Q1

REPORT INFORMATION
  Report Type: Spontaneous
  Country: CA (occurrence: CA)
  Receive Date: 20191022
  Receipt Date: 20200120
  Transmission Date: 20200409
  Serious: Yes (Hospitalization, Other)
  Sender: FDA-Public Use
  Company Number: CA-PFIZER INC-2017494663

PATIENT
  Age: 26 Year
  Sex: Female

DRUGS (8)
  1. GENOTROPIN GOQUICK [Suspect]
     Active Substance: SOMATROPIN
     Dosage: 0.20 MG, DAILY
     Route: 058
     Dates: start: 2017
  2. GENOTROPIN GOQUICK [Suspect]
     Active Substance: SOMATROPIN
     Dosage: 0.2 G, 1XDAY
     Route: 058
     Dates: start: 2017
  3. ALESSE 28 [Concomitant]
     Active Substance: ETHINYL ESTRADIOL\LEVONORGESTREL
     Dosage: 1 PILL, DAILY
     Route: 048
  4. GENOTROPIN GOQUICK [Suspect]
     Active Substance: SOMATROPIN
     Indication: GROWTH HORMONE DEFICIENCY
     Dosage: 0.15 MG, DAILY
     Route: 058
     Dates: start: 20170928
  5. VITAMIN D [Concomitant]
     Active Substance: VITAMIN D NOS
     Dosage: 10000 IU, WEEKLY
     Dates: start: 2009
  6. EURO-CAL [Concomitant]
     Dosage: 500 MG, DAILY
     Route: 048
     Dates: start: 2009
  7. SYNTHROID [Concomitant]
     Active Substance: LEVOTHYROXINE SODIUM
     Dosage: 0.075 MG, DAILY
     Route: 048
     Dates: start: 2009
  8. OMEGA-3 ACIDS [Concomitant]
     Active Substance: OMEGA-3 FATTY ACIDS
     Dosage: 1 TO 2 TIMES DAILY
     Route: 048

REACTIONS (4)
  - Device leakage [Recovered/Resolved]
  - Liver abscess [Unknown]
  - Incorrect dose administered by device [Recovered/Resolved]
  - Product prescribing error [Recovered/Resolved]

NARRATIVE: CASE EVENT DATE: 2018
